FAERS Safety Report 10128717 (Version 1)
Quarter: 2014Q2

REPORT INFORMATION
  Report Type: Spontaneous
  Country: FR (occurrence: FR)
  Receive Date: 20140428
  Receipt Date: 20140428
  Transmission Date: 20141212
  Serious: Yes (Hospitalization)
  Sender: FDA-Public Use
  Company Number: FR-JNJFOC-20140416407

PATIENT
  Age: 77 Year
  Sex: Female

DRUGS (7)
  1. XARELTO [Suspect]
     Indication: ATRIAL FIBRILLATION
     Route: 048
     Dates: start: 201303, end: 20140306
  2. XARELTO [Suspect]
     Indication: CEREBROVASCULAR ACCIDENT PROPHYLAXIS
     Route: 048
     Dates: start: 201303, end: 20140306
  3. INIPOMP [Concomitant]
     Route: 065
  4. TAREG [Concomitant]
     Route: 065
  5. LOXEN [Concomitant]
     Route: 065
  6. EUCREAS [Concomitant]
     Route: 065
  7. TAHOR [Concomitant]
     Route: 065

REACTIONS (4)
  - Coagulation factor V level decreased [Recovered/Resolved]
  - Prothrombin level decreased [Recovered/Resolved]
  - Prothrombin time ratio decreased [Recovered/Resolved with Sequelae]
  - Activated partial thromboplastin time prolonged [Recovered/Resolved]
